FAERS Safety Report 14494814 (Version 1)
Quarter: 2018Q1

REPORT INFORMATION
  Report Type: Spontaneous
  Country: BR (occurrence: BR)
  Receive Date: 20180206
  Receipt Date: 20180206
  Transmission Date: 20180509
  Serious: Yes (Hospitalization)
  Sender: FDA-Public Use
  Company Number: PHHY2018BR018698

PATIENT
  Sex: Female
  Weight: 41.6 kg

DRUGS (1)
  1. TEGRETOL [Suspect]
     Active Substance: CARBAMAZEPINE
     Indication: PRODUCT USED FOR UNKNOWN INDICATION
     Dosage: 1 DF, QD
     Route: 065
     Dates: start: 20171213, end: 20180124

REACTIONS (3)
  - Hyponatraemia [Recovering/Resolving]
  - Urine sodium increased [Recovering/Resolving]
  - Abscess [Recovering/Resolving]
